FAERS Safety Report 9825975 (Version 2)
Quarter: 2014Q1

REPORT INFORMATION
  Report Type: Spontaneous
  Country: BG (occurrence: BG)
  Receive Date: 20140117
  Receipt Date: 20140219
  Transmission Date: 20141002
  Serious: Yes (Other)
  Sender: FDA-Public Use
  Company Number: BG-ASTRAZENECA-2014SE02208

PATIENT
  Age: 28 Year
  Sex: Female

DRUGS (1)
  1. MARCAINE SPINAL HEAVY [Suspect]
     Indication: SPINAL ANAESTHESIA
     Route: 037
     Dates: start: 201311, end: 201311

REACTIONS (2)
  - Trismus [Unknown]
  - Drug ineffective [Unknown]
